FAERS Safety Report 11072988 (Version 1)
Quarter: 2015Q2

REPORT INFORMATION
  Report Type: Spontaneous
  Country: FR (occurrence: FR)
  Receive Date: 20150428
  Receipt Date: 20150428
  Transmission Date: 20150821
  Serious: Yes (Other)
  Sender: FDA-Public Use
  Company Number: FR-SHIRE-FR201503604

PATIENT
  Age: 85 Year
  Sex: Female

DRUGS (2)
  1. URSOLVAN [Concomitant]
     Active Substance: URSODIOL
     Indication: PRODUCT USED FOR UNKNOWN INDICATION
     Dosage: UNK, UNKNOWN
     Route: 065
  2. MIDON [Suspect]
     Active Substance: MIDODRINE
     Indication: ORTHOSTATIC HYPOTENSION
     Dosage: 7.5 MG (THREE 2.5 MG TABLETS), 1X/DAY:QD
     Route: 048
     Dates: start: 20140920, end: 20141101

REACTIONS (4)
  - Aggression [Unknown]
  - Bradycardia [Unknown]
  - Mental disorder [Unknown]
  - Hallucination [Unknown]

NARRATIVE: CASE EVENT DATE: 20141001
